FAERS Safety Report 6915135-9 (Version None)
Quarter: 2010Q3

REPORT INFORMATION
  Report Type: 
  Country: None (occurrence: None)
  Receive Date: 20100809
  Receipt Date: 20100729
  Transmission Date: 20110219
  Serious: Yes (Hospitalization, Other)
  Sender: FDA-Public Use
  Company Number: DE-WYE-H16212210

PATIENT
  Age: 84 Year
  Sex: Female
  Weight: 72 kg

DRUGS (9)
  1. PANTOZOL [Suspect]
     Indication: PROPHYLAXIS AGAINST GASTROINTESTINAL ULCER
     Route: 048
  2. AMPICILLIN AND SULBACTAM [Interacting]
     Route: 042
     Dates: start: 20091129, end: 20091130
  3. CLARITHROMYCIN [Interacting]
     Indication: HELICOBACTER INFECTION
     Route: 048
     Dates: start: 20091221, end: 20091227
  4. METRONIDAZOLE [Concomitant]
     Route: 048
     Dates: start: 20091221, end: 20091227
  5. RAMIPRIL [Concomitant]
     Indication: HYPERTENSION
     Route: 048
  6. SIMVASTATIN [Concomitant]
     Indication: ISCHAEMIC HEART DISEASE PROPHYLAXIS
     Route: 048
  7. ACETYLSALICYLIC ACID SRT [Concomitant]
     Indication: ISCHAEMIC HEART DISEASE PROPHYLAXIS
     Route: 048
     Dates: start: 20091101
  8. LEVOFLOXACIN [Interacting]
     Indication: URINARY TRACT INFECTION
     Route: 048
     Dates: start: 20091130, end: 20091208
  9. METOPROLOL [Concomitant]
     Indication: HYPERTENSION
     Dosage: UNKNOWN
     Route: 048

REACTIONS (3)
  - CLOSTRIDIUM DIFFICILE COLITIS [None]
  - DRUG INTERACTION [None]
  - GASTROINTESTINAL HAEMORRHAGE [None]
